FAERS Safety Report 20636046 (Version 4)
Quarter: 2022Q2

REPORT INFORMATION
  Report Type: Report from Study
  Country: CA (occurrence: CA)
  Receive Date: 20220325
  Receipt Date: 20220602
  Transmission Date: 20220721
  Serious: Yes (Hospitalization)
  Sender: FDA-Public Use
  Company Number: CA-Taiho Oncology Inc-EU-2022-00677

PATIENT
  Age: 77 Year
  Sex: Female

DRUGS (19)
  1. LONSURF [Suspect]
     Active Substance: TIPIRACIL HYDROCHLORIDE\TRIFLURIDINE
     Indication: Colorectal cancer metastatic
     Dosage: FREQUENCY UNKNOWN, CYCLE 1 FROM 15/FEB/2022 TILL 14/MAR/2022
     Route: 048
     Dates: start: 20220215, end: 20220314
  2. LONSURF [Suspect]
     Active Substance: TIPIRACIL HYDROCHLORIDE\TRIFLURIDINE
     Dosage: CYCLE UNKNOWN
     Route: 048
     Dates: end: 20220527
  3. MORPHINE SULFATE [Concomitant]
     Active Substance: MORPHINE SULFATE
  4. TYLENOL [Concomitant]
     Active Substance: ACETAMINOPHEN
  5. PANTOPRAZOLE SODIUM [Concomitant]
     Active Substance: PANTOPRAZOLE SODIUM
  6. VESICARE [Concomitant]
     Active Substance: SOLIFENACIN SUCCINATE
  7. VITAMIN D [Concomitant]
     Active Substance: VITAMIN D NOS
  8. FRAGMIN [Concomitant]
     Active Substance: DALTEPARIN SODIUM
  9. AVAPRO [Concomitant]
     Active Substance: IRBESARTAN
  10. CELX [Concomitant]
  11. NORVASC [Concomitant]
     Active Substance: AMLODIPINE BESYLATE
  12. COLACE [Concomitant]
     Active Substance: DOCUSATE SODIUM
  13. SENOKOT [Concomitant]
     Active Substance: SENNOSIDES
  14. ATIVAN [Concomitant]
     Active Substance: LORAZEPAM
  15. PROCHLORPERAZINE [Concomitant]
     Active Substance: PROCHLORPERAZINE
  16. IMODIUM [Concomitant]
     Active Substance: LOPERAMIDE HYDROCHLORIDE
  17. LAX-A DAY [Concomitant]
  18. MAGNESIUM [Concomitant]
     Active Substance: MAGNESIUM
  19. CALCIUM [Concomitant]
     Active Substance: CALCIUM

REACTIONS (2)
  - Body temperature decreased [Recovered/Resolved]
  - Neutropenia [Recovered/Resolved]

NARRATIVE: CASE EVENT DATE: 20220309
